FAERS Safety Report 7411299-1 (Version None)
Quarter: 2011Q2

REPORT INFORMATION
  Report Type: 
  Country: None (occurrence: None)
  Receive Date: 20110413
  Receipt Date: 20100528
  Transmission Date: 20111010
  Serious: Yes (Hospitalization)
  Sender: FDA-Public Use
  Company Number: US-BRISTOL-MYERS SQUIBB COMPANY-15126089

PATIENT
  Age: 68 Year
  Sex: Female
  Weight: 64 kg

DRUGS (11)
  1. MELOXICAM [Concomitant]
     Dosage: TAKING 15 MONTHS-ON/OFF
  2. ZOLPIDEM [Concomitant]
     Dates: start: 20090701
  3. BENADRYL [Concomitant]
     Indication: PREMEDICATION
     Route: 042
  4. DOXYCYCLINE [Concomitant]
     Dates: start: 20100514
  5. AVASTIN [Concomitant]
     Dates: start: 20090901
  6. SIMVASTATIN [Concomitant]
     Dates: start: 20100521
  7. VYTORIN [Concomitant]
  8. OXYBUTYNIN [Concomitant]
     Dosage: TAKING SEVERAL SMOKE.
  9. ERBITUX [Suspect]
     Indication: COLON CANCER STAGE IV
     Dates: start: 20100513
  10. GABAPENTIN [Concomitant]
     Dosage: STARTED 4 MONTHS AGO.
  11. ONDANSETRON [Concomitant]
     Dates: start: 20091001

REACTIONS (1)
  - INFUSION RELATED REACTION [None]
